FAERS Safety Report 23962613 (Version 1)
Quarter: 2024Q2

REPORT INFORMATION
  Report Type: Spontaneous
  Country: DE (occurrence: DE)
  Receive Date: 20240611
  Receipt Date: 20240611
  Transmission Date: 20240715
  Serious: Yes (Other)
  Sender: FDA-Public Use
  Company Number: DE-RICHTER-2024-GR-005368

PATIENT
  Age: 34 Year
  Sex: Female

DRUGS (1)
  1. ESTRADIOL\NORETHINDRONE ACETATE\RELUGOLIX [Suspect]
     Active Substance: ESTRADIOL\NORETHINDRONE ACETATE\RELUGOLIX
     Indication: Product use in unapproved indication
     Dosage: 1 TAB, QD
     Route: 048

REACTIONS (2)
  - Micturition urgency [Recovered/Resolved]
  - Product use in unapproved indication [Recovered/Resolved]
